FAERS Safety Report 6933936-8 (Version None)
Quarter: 2010Q3

REPORT INFORMATION
  Report Type: 
  Country: None (occurrence: None)
  Receive Date: 20100820
  Receipt Date: 20100817
  Transmission Date: 20110219
  Serious: Yes (Death, Hospitalization)
  Sender: FDA-Public Use
  Company Number: NL-ROCHE-721420

PATIENT
  Sex: Male

DRUGS (7)
  1. BEVACIZUMAB [Suspect]
     Indication: COLORECTAL CANCER
     Dosage: DATE OF LAST CYCLE: 18 MAY 2010
     Route: 042
     Dates: start: 20100427
  2. CAPECITABINE [Suspect]
     Indication: COLORECTAL CANCER
     Dosage: DATE OF LAST CYCLE: 18 MAY 2010
     Route: 048
     Dates: start: 20100427
  3. OSCAL [Concomitant]
  4. SOTALOL HCL [Concomitant]
  5. SYMBICORT [Concomitant]
  6. SPIRIVA [Concomitant]
  7. SIMVASTIN [Concomitant]

REACTIONS (2)
  - DEATH [None]
  - HIP ARTHROPLASTY [None]
